FAERS Safety Report 8857259 (Version 1)
Quarter: 2012Q4

REPORT INFORMATION
  Report Type: 
  Country: US (occurrence: US)
  Receive Date: 20121024
  Receipt Date: 20121024
  Transmission Date: 20130627
  Serious: No
  Sender: FDA-Public Use
  Company Number: US-009507513-1210USA008228

PATIENT
  Age: 3 Year
  Sex: Male

DRUGS (2)
  1. PEGINTRON [Suspect]
     Indication: HEPATITIS
     Dosage: UNK
  2. RIBAVIRIN [Suspect]
     Indication: HEPATITIS
     Dosage: UNK

REACTIONS (1)
  - Affective disorder [Not Recovered/Not Resolved]
